FAERS Safety Report 9929865 (Version 1)
Quarter: 2014Q1

REPORT INFORMATION
  Report Type: Report from Study
  Country: US (occurrence: US)
  Receive Date: 20140227
  Receipt Date: 20140227
  Transmission Date: 20141002
  Serious: No
  Sender: FDA-Public Use
  Company Number: US-ABBVIE-12P-163-0997966-00

PATIENT
  Age: 33 Year
  Sex: Female
  Weight: 59.02 kg

DRUGS (7)
  1. HUMIRA (ABBOTT) [Suspect]
     Indication: CROHN^S DISEASE
     Route: 058
     Dates: start: 2008, end: 2009
  2. HUMIRA (ABBOTT) [Suspect]
     Indication: RHEUMATOID ARTHRITIS
     Route: 058
     Dates: start: 201209
  3. APRISO [Suspect]
     Indication: CROHN^S DISEASE
  4. DEXILANT [Suspect]
     Indication: GASTRIC DISORDER
  5. CARAFATE [Concomitant]
     Indication: GASTRIC DISORDER
  6. IRON [Concomitant]
     Indication: ANAEMIA
  7. UNKNOWN NSAID [Concomitant]
     Indication: RHEUMATOID ARTHRITIS

REACTIONS (2)
  - Skin disorder [Not Recovered/Not Resolved]
  - Alopecia [Not Recovered/Not Resolved]
